FAERS Safety Report 5125419-5 (Version None)
Quarter: 2006Q3

REPORT INFORMATION
  Report Type: 
  Country: None (occurrence: None)
  Receive Date: 20060822
  Receipt Date: 20060601
  Transmission Date: 20061208
  Serious: No
  Sender: FDA-Public Use
  Company Number: PHEH2006US07120

PATIENT
  Sex: Female

DRUGS (2)
  1. ENABLEX [Suspect]
  2. LOPRESSOR [Suspect]

REACTIONS (3)
  - BLOOD CITRIC ACID ABNORMAL [None]
  - BLOOD CITRIC ACID INCREASED [None]
  - BLOOD PYRUVIC ACID [None]
